FAERS Safety Report 4531626-2 (Version None)
Quarter: 2004Q4

REPORT INFORMATION
  Report Type: 
  Country: None (occurrence: None)
  Receive Date: 20041216
  Receipt Date: 20041129
  Transmission Date: 20050328
  Serious: Yes (Other)
  Sender: FDA-Public Use
  Company Number: USA041184777

PATIENT
  Age: 72 Year
  Sex: Female
  Weight: 76 kg

DRUGS (2)
  1. HUMULIN N [Suspect]
     Indication: DIABETES MELLITUS
     Dosage: 43 U DAY
     Dates: start: 19740101
  2. HUMULIN R [Suspect]
     Indication: DIABETES MELLITUS

REACTIONS (7)
  - CARDIAC DISORDER [None]
  - CARPAL TUNNEL SYNDROME [None]
  - FEELING ABNORMAL [None]
  - HIP FRACTURE [None]
  - NERVE INJURY [None]
  - PHARMACEUTICAL PRODUCT COMPLAINT [None]
  - PULMONARY MASS [None]
